FAERS Safety Report 24089750 (Version 1)
Quarter: 2024Q3

REPORT INFORMATION
  Report Type: Spontaneous
  Country: CN (occurrence: CN)
  Receive Date: 20240715
  Receipt Date: 20240715
  Transmission Date: 20241017
  Serious: Yes (Other)
  Sender: Steriscience PTE
  Company Number: CN-STERISCIENCE B.V.-2024-ST-001026

PATIENT
  Age: 65 Year
  Sex: Male

DRUGS (2)
  1. GANCICLOVIR SODIUM [Suspect]
     Active Substance: GANCICLOVIR SODIUM
     Indication: Herpes zoster
     Dosage: UNK
     Route: 065
  2. BURN CREAM [Concomitant]
     Active Substance: TETRACAINE
     Indication: Herpes zoster
     Dosage: UNK
     Route: 065

REACTIONS (2)
  - Disease progression [Unknown]
  - Drug ineffective for unapproved indication [Unknown]
